FAERS Safety Report 21949816 (Version 1)
Quarter: 2023Q1

REPORT INFORMATION
  Report Type: Spontaneous
  Country: US (occurrence: US)
  Receive Date: 20230203
  Receipt Date: 20230203
  Transmission Date: 20230417
  Serious: Yes (Other)
  Sender: FDA-Public Use
  Company Number: US-ORPHANEU-2017000073

PATIENT

DRUGS (5)
  1. CYSTADANE [Suspect]
     Active Substance: BETAINE
     Indication: Vitamin B12 deficiency
     Dosage: 4 G, BID
     Dates: start: 20150610
  2. FOLIC ACID [Concomitant]
     Active Substance: FOLIC ACID
  3. CARNITOR [Concomitant]
     Active Substance: LEVOCARNITINE
  4. HYDROXOCOBALAMIN [Concomitant]
     Active Substance: HYDROXOCOBALAMIN
  5. POLYVITAMIN                        /07504101/ [Concomitant]

REACTIONS (1)
  - Seizure [Not Recovered/Not Resolved]

NARRATIVE: CASE EVENT DATE: 20161223
